FAERS Safety Report 5547337-0 (Version None)
Quarter: 2007Q4

REPORT INFORMATION
  Report Type: 
  Country: None (occurrence: None)
  Receive Date: 20071206
  Receipt Date: 20071122
  Transmission Date: 20080405
  Serious: Yes (Hospitalization)
  Sender: FDA-Public Use
  Company Number: POMP-11279

PATIENT
  Age: 47 Year
  Sex: Female
  Weight: 55 kg

DRUGS (6)
  1. MYOZYME [Suspect]
     Indication: GLYCOGEN STORAGE DISEASE TYPE II
     Dosage: 20 MG/KG Q2WKS IV
     Route: 042
     Dates: start: 20061005
  2. ALPHA-GLUCOSIDASE (HUMAN, RECOMBINATN, CHO CELLS, GENZYME). MFR: GENZY [Suspect]
     Indication: GLYCOGEN STORAGE DISEASE TYPE II
     Dosage: 20 MG/KG Q2WKS IV
     Route: 042
     Dates: start: 20050728, end: 20060901
  3. ESOMEPRAZOLE [Concomitant]
  4. CITALOPRAM HYDROBROMIDE [Concomitant]
  5. OXYBUTYNIN CHLORIDE [Concomitant]
  6. ACETAMINOPHEN [Concomitant]

REACTIONS (6)
  - ACQUIRED DIAPHRAGMATIC EVENTRATION [None]
  - BRONCHIECTASIS [None]
  - PNEUMOTHORAX [None]
  - PULMONARY FIBROSIS [None]
  - RED BLOOD CELL SEDIMENTATION RATE INCREASED [None]
  - RESPIRATORY FAILURE [None]
